FAERS Safety Report 21685248 (Version 1)
Quarter: 2022Q4

REPORT INFORMATION
  Report Type: Spontaneous
  Country: US (occurrence: US)
  Receive Date: 20221206
  Receipt Date: 20221206
  Transmission Date: 20230113
  Serious: Yes (Other)
  Sender: FDA-Public Use
  Company Number: US-CIPLA LTD.-2022US06976

PATIENT
  Age: 35 Year
  Sex: Male

DRUGS (2)
  1. TESTOSTERONE [Suspect]
     Active Substance: TESTOSTERONE
     Indication: Hypogonadism male
     Dosage: UNK
     Route: 030
  2. TESTOSTERONE [Suspect]
     Active Substance: TESTOSTERONE
     Indication: Muscle building therapy
     Dosage: UNK, EXCEEDED REGULAR REPLACEMENT THERAPY DOSE
     Route: 030

REACTIONS (4)
  - Intracranial pressure increased [Recovering/Resolving]
  - Drug level increased [Unknown]
  - Haemoglobin increased [Unknown]
  - Haematocrit increased [Unknown]
